FAERS Safety Report 16556220 (Version 2)
Quarter: 2019Q3

REPORT INFORMATION
  Report Type: Spontaneous
  Country: US (occurrence: US)
  Receive Date: 20190710
  Receipt Date: 20190712
  Transmission Date: 20191004
  Serious: Yes (Other)
  Sender: FDA-Public Use
  Company Number: US-BIODELIVERY SCIENCES INTERNATIONAL-2019BDSI0331

PATIENT
  Age: 38 Year
  Sex: Female
  Weight: 69.01 kg

DRUGS (7)
  1. SALBUTAMOL [Concomitant]
     Active Substance: ALBUTEROL
     Indication: ASTHMA
     Dosage: UNKNOWN, UNKNOWN
  2. ESOMEPRAZOLE MAGNESIUM. [Concomitant]
     Active Substance: ESOMEPRAZOLE MAGNESIUM
     Indication: BRONCHITIS
     Dosage: UNKNOWN, UNKNOWN
  3. BUPRENORPHINE/NALOXONE [Suspect]
     Active Substance: BUPRENORPHINE\NALOXONE
     Indication: DRUG DEPENDENCE
     Dosage: 2.1/0.3 MG
     Route: 002
     Dates: start: 20190406, end: 20190410
  4. ENTECAVIR. [Concomitant]
     Active Substance: ENTECAVIR
     Indication: HEPATITIS
     Dosage: UNKNOWN, UNKNOWN
  5. BUPRENORPHINE/NALOXONE [Suspect]
     Active Substance: BUPRENORPHINE\NALOXONE
     Dosage: 4.2/0.7 MG
     Route: 002
     Dates: start: 20190411, end: 20190413
  6. CORTICOSTEROID NOS [Concomitant]
     Active Substance: CORTICOSTEROID NOS
     Indication: ASTHMA
     Dosage: UNKNOWN, UNKNOWN
  7. BUPRENORPHINE/NALOXONE [Suspect]
     Active Substance: BUPRENORPHINE\NALOXONE
     Dosage: 4.2/0.7 MG
     Route: 002
     Dates: start: 20190417, end: 20190418

REACTIONS (5)
  - Drug withdrawal syndrome [Recovered/Resolved]
  - Product physical consistency issue [Recovered/Resolved]
  - Drug ineffective [Recovered/Resolved]
  - Oral administration complication [Recovered/Resolved]
  - Product solubility abnormal [Recovered/Resolved]

NARRATIVE: CASE EVENT DATE: 201904
